FAERS Safety Report 12733666 (Version 2)
Quarter: 2020Q4

REPORT INFORMATION
  Report Type: Spontaneous
  Country: US (occurrence: US)
  Receive Date: 20160912
  Receipt Date: 20201027
  Transmission Date: 20210113
  Serious: Yes (Hospitalization)
  Sender: FDA-Public Use
  Company Number: US-JNJFOC-20160528532

PATIENT
  Age: 70 Year
  Sex: Male
  Weight: 66.23 kg

DRUGS (2)
  1. XARELTO [Suspect]
     Active Substance: RIVAROXABAN
     Indication: THROMBOSIS PROPHYLAXIS
     Route: 048
     Dates: start: 20140701, end: 20140715
  2. XARELTO [Suspect]
     Active Substance: RIVAROXABAN
     Dosage: 20MG
     Route: 048
     Dates: start: 201407, end: 201407

REACTIONS (2)
  - Haematuria [Unknown]
  - Gastrointestinal haemorrhage [Not Recovered/Not Resolved]

NARRATIVE: CASE EVENT DATE: 20140709
